FAERS Safety Report 6175678-5 (Version None)
Quarter: 2009Q2

REPORT INFORMATION
  Report Type: 
  Country: None (occurrence: None)
  Receive Date: 20090427
  Receipt Date: 20080617
  Transmission Date: 20091009
  Serious: Yes (Other)
  Sender: FDA-Public Use
  Company Number: 2008-GWUS-0419

PATIENT
  Sex: Male

DRUGS (1)
  1. ALDARA [Suspect]
     Indication: ACTINIC KERATOSIS
     Dosage: APPLICATION- TOPICAL
     Route: 061

REACTIONS (1)
  - IDIOPATHIC THROMBOCYTOPENIC PURPURA [None]
